FAERS Safety Report 13883013 (Version 4)
Quarter: 2018Q1

REPORT INFORMATION
  Report Type: Report from Study
  Country: US (occurrence: US)
  Receive Date: 20170818
  Receipt Date: 20180109
  Transmission Date: 20180508
  Serious: Yes (Death, Hospitalization)
  Sender: FDA-Public Use
  Company Number: US-ACTELION-A-US2017-153729

PATIENT
  Age: 81 Year
  Sex: Female
  Weight: 55.33 kg

DRUGS (3)
  1. OPSUMIT [Suspect]
     Active Substance: MACITENTAN
     Indication: PULMONARY ARTERIAL HYPERTENSION
     Dosage: 10 MG, QD
     Route: 048
  2. UPTRAVI [Suspect]
     Active Substance: SELEXIPAG
     Indication: PULMONARY ARTERIAL HYPERTENSION
     Dosage: 400 MCG, BID
     Route: 048
  3. UPTRAVI [Suspect]
     Active Substance: SELEXIPAG
     Dosage: 600 MCG UNK
     Route: 048

REACTIONS (17)
  - Dehydration [Unknown]
  - Oesophageal motility disorder [Unknown]
  - Nausea [Unknown]
  - Chest pain [Unknown]
  - Syncope [Unknown]
  - Death [Fatal]
  - Scleroderma [Unknown]
  - Oedema peripheral [Unknown]
  - Gastrointestinal tube insertion [Unknown]
  - Hypotension [Unknown]
  - Oesophageal disorder [Unknown]
  - Intentional product use issue [Unknown]
  - Drug intolerance [Unknown]
  - Gastrooesophageal reflux disease [Unknown]
  - Abdominal pain upper [Unknown]
  - Malaise [Unknown]
  - Pain in extremity [Unknown]

NARRATIVE: CASE EVENT DATE: 20171117
